FAERS Safety Report 26204943 (Version 1)
Quarter: 2025Q4

REPORT INFORMATION
  Report Type: Spontaneous
  Country: EU (occurrence: EU)
  Receive Date: 20251227
  Receipt Date: 20251227
  Transmission Date: 20260119
  Serious: Yes (Hospitalization, Other)
  Sender: CELLTRION
  Company Number: None

PATIENT

DRUGS (5)
  1. VEGZELMA [Suspect]
     Active Substance: BEVACIZUMAB-ADCD
     Indication: Glioblastoma
     Route: 042
     Dates: start: 20251203, end: 20251203
  2. TEMOZOLOMIDE [Concomitant]
     Active Substance: TEMOZOLOMIDE
     Indication: Glioblastoma
     Dosage: 1 DF, CYCLIC (400 MG)
     Route: 048
     Dates: start: 20250522
  3. MEDROL [Concomitant]
     Active Substance: METHYLPREDNISOLONE
     Indication: Glioblastoma
     Dosage: 100 MILLIGRAM, QD
     Route: 048
     Dates: start: 20250131
  4. ALPRAZOLAM [Concomitant]
     Active Substance: ALPRAZOLAM
     Indication: Product used for unknown indication
     Route: 048
  5. ACETAMINOPHEN [Concomitant]
     Active Substance: ACETAMINOPHEN
     Indication: Pain
     Route: 048

REACTIONS (2)
  - Intracranial tumour haemorrhage [Not Recovered/Not Resolved]
  - Intentional product use issue [Unknown]

NARRATIVE: CASE EVENT DATE: 20251205
